FAERS Safety Report 7283907-X (Version None)
Quarter: 2011Q1

REPORT INFORMATION
  Report Type: 
  Country: None (occurrence: None)
  Receive Date: 20110209
  Receipt Date: 20110131
  Transmission Date: 20110831
  Serious: Yes (Other)
  Sender: FDA-Public Use
  Company Number: GXBR2011US00562

PATIENT
  Sex: Male
  Weight: 117.91 kg

DRUGS (13)
  1. FUROSEMIDE [Concomitant]
     Indication: DIURETIC THERAPY
     Dosage: 40 MG, QD
     Route: 048
     Dates: start: 20090101
  2. ASACOL [Concomitant]
     Indication: COLITIS
     Dosage: 400 MG, BID2SDO
     Dates: start: 20070101
  3. METOPROLOL TARTRATE [Concomitant]
     Indication: HYPERTENSION
     Dosage: 12.5 MG, BID
     Route: 048
     Dates: start: 20090101
  4. IRON [Concomitant]
     Indication: ANAEMIA
     Dosage: 140 MG, TID
     Dates: start: 20010101
  5. AMIODARONE HYDROCHLORIDE [Suspect]
     Indication: HEART RATE IRREGULAR
     Dosage: 200 MG, QD
     Route: 048
     Dates: start: 20090101, end: 20100115
  6. VICODIN [Concomitant]
     Indication: PAIN
     Dosage: 7.5/750MG ONE TO TWO TIMES DAILY
     Dates: start: 19860101
  7. ATROVENT [Concomitant]
     Indication: ASTHMA
     Dosage: 2 DAILY AS NEEDED
     Dates: start: 20010101
  8. DETROL [Concomitant]
     Indication: BLADDER DISORDER
     Dosage: 2 MG, UNK
     Dates: start: 20060101
  9. POTASSIUM CHLORIDE [Concomitant]
     Indication: BLOOD POTASSIUM
     Dosage: 10 MEQ, UNK
     Dates: start: 20090101
  10. OMEPRAZOLE [Concomitant]
     Indication: GASTROOESOPHAGEAL REFLUX DISEASE
     Dosage: 20 MG, UNK
     Dates: start: 19860101
  11. COUMADIN [Concomitant]
     Indication: ANTICOAGULANT THERAPY
     Dosage: 7.5 MG, QD
     Route: 048
     Dates: start: 20090101
  12. SPIRIVA [Concomitant]
     Indication: ASTHMA
     Dosage: 18 UG, QD
     Dates: start: 20010101
  13. LISINOPRIL [Concomitant]
     Indication: HYPERTENSION
     Dosage: 20 MG, QD
     Route: 048
     Dates: start: 20090101

REACTIONS (4)
  - CONFUSIONAL STATE [None]
  - TRANSIENT ISCHAEMIC ATTACK [None]
  - MACULAR DEGENERATION [None]
  - PULMONARY OEDEMA [None]
